APPROVED DRUG PRODUCT: PIZENSY
Active Ingredient: LACTITOL
Strength: 10GM
Dosage Form/Route: FOR SOLUTION;ORAL
Application: N211281 | Product #001
Applicant: BRAINTREE LABORATORIES INC
Approved: Feb 12, 2020 | RLD: Yes | RS: No | Type: DISCN

PATENTS:
Patent 10806743 | Expires: May 12, 2037